FAERS Safety Report 21706339 (Version 1)
Quarter: 2022Q4

REPORT INFORMATION
  Report Type: Other
  Country: NL (occurrence: None)
  Receive Date: 20221209
  Receipt Date: 20221209
  Transmission Date: 20230113
  Serious: Yes (Death)
  Sender: FDA-Public Use
  Company Number: NL-ROCHE-3238771

PATIENT

DRUGS (1)
  1. RITUXIMAB [Suspect]
     Active Substance: RITUXIMAB
     Indication: Product used for unknown indication
     Route: 065

REACTIONS (2)
  - Hepatitis B reactivation [Fatal]
  - Hepatic failure [Fatal]
